FAERS Safety Report 9401938 (Version 2)
Quarter: 2013Q3

REPORT INFORMATION
  Report Type: Spontaneous
  Country: US (occurrence: US)
  Receive Date: 20130716
  Receipt Date: 20130801
  Transmission Date: 20140515
  Serious: No
  Sender: FDA-Public Use
  Company Number: US-PFIZER INC-2013206415

PATIENT
  Age: 66 Year
  Sex: Female
  Weight: 97.96 kg

DRUGS (1)
  1. LYRICA [Suspect]
     Indication: NEURALGIA
     Dosage: 75 MG, 2X/DAY
     Route: 048
     Dates: start: 20130709

REACTIONS (3)
  - Dry mouth [Unknown]
  - Somnolence [Unknown]
  - Dizziness [Unknown]
